FAERS Safety Report 5229845-5 (Version None)
Quarter: 2007Q1

REPORT INFORMATION
  Report Type: 
  Country: None (occurrence: None)
  Receive Date: 20070206
  Receipt Date: 20060831
  Transmission Date: 20070707
  Serious: No
  Sender: FDA-Public Use
  Company Number: US-GLAXOSMITHKLINE-A0559049A

PATIENT
  Age: 64 Year
  Sex: Male
  Weight: 87.3 kg

DRUGS (3)
  1. PAXIL [Suspect]
     Indication: ANXIETY
     Dosage: 20MG PER DAY
     Route: 048
     Dates: start: 20030601, end: 20040101
  2. CLONAZEPAM [Concomitant]
  3. BUPROPION HYDROCHLORIDE [Concomitant]
     Indication: TOBACCO ABUSE
     Dosage: 150MG TWICE PER DAY
     Dates: start: 20030707

REACTIONS (7)
  - ASTHENIA [None]
  - DECREASED APPETITE [None]
  - DEPRESSED MOOD [None]
  - DEPRESSION [None]
  - DRUG WITHDRAWAL SYNDROME [None]
  - DRY MOUTH [None]
  - POOR QUALITY SLEEP [None]
